FAERS Safety Report 22279270 (Version 1)
Quarter: 2023Q2

REPORT INFORMATION
  Report Type: Spontaneous
  Country: US (occurrence: US)
  Receive Date: 20230503
  Receipt Date: 20230503
  Transmission Date: 20230722
  Serious: Yes (Other)
  Sender: FDA-Public Use
  Company Number: US-Blueprint Medicines Corporation-1082

PATIENT
  Sex: Female

DRUGS (1)
  1. AYVAKIT [Suspect]
     Active Substance: AVAPRITINIB
     Indication: Systemic mastocytosis
     Route: 065

REACTIONS (8)
  - Anaphylactic reaction [Unknown]
  - Neoplasm malignant [Unknown]
  - Surgery [Unknown]
  - Haemoglobin decreased [Unknown]
  - Abnormal organ growth [Unknown]
  - Splenomegaly [Unknown]
  - Drug interaction [Unknown]
  - Intentional dose omission [Unknown]
